FAERS Safety Report 5188362-1 (Version None)
Quarter: 2006Q4

REPORT INFORMATION
  Report Type: 
  Country: None (occurrence: None)
  Receive Date: 20061221
  Receipt Date: 20061214
  Transmission Date: 20070319
  Serious: Yes (Hospitalization)
  Sender: FDA-Public Use
  Company Number: ES-BRISTOL-MYERS SQUIBB COMPANY-13613914

PATIENT
  Age: 83 Year
  Sex: Male

DRUGS (5)
  1. SINEMET [Suspect]
     Indication: PARKINSON'S DISEASE
     Route: 048
     Dates: start: 20060201, end: 20060804
  2. MIRAPEXIN [Interacting]
     Indication: PARKINSON'S DISEASE
     Dosage: MIRAPEXIN 0.7MG FEB2006 TO 08-AUG-2006; 00MG;TID;PO;PARKINSON (CONCOM)
     Route: 048
     Dates: start: 20060201, end: 20060808
  3. SEGURIL [Concomitant]
     Indication: ESSENTIAL HYPERTENSION
     Route: 048
  4. OLMETEC [Concomitant]
     Indication: ESSENTIAL HYPERTENSION
     Route: 048
     Dates: end: 20060808
  5. ISCOVER [Concomitant]
     Indication: MYOCARDIAL ISCHAEMIA
     Route: 048
     Dates: end: 20060810

REACTIONS (2)
  - DRUG INTERACTION [None]
  - PSYCHOTIC DISORDER [None]
